FAERS Safety Report 7476963-7 (Version None)
Quarter: 2011Q2

REPORT INFORMATION
  Report Type: 
  Country: None (occurrence: None)
  Receive Date: 20110512
  Receipt Date: 20100601
  Transmission Date: 20111010
  Serious: No
  Sender: FDA-Public Use
  Company Number: US-AMGEN-TCS415687

PATIENT

DRUGS (3)
  1. ENBREL [Suspect]
     Indication: PSORIATIC ARTHROPATHY
     Dosage: 50 MG, QWK
     Dates: start: 20070101
  2. LEFLUNOMIDE [Concomitant]
     Dosage: UNK UNK, UNK
  3. CELECOXIB [Concomitant]
     Dosage: UNK UNK, UNK

REACTIONS (3)
  - THERAPEUTIC RESPONSE DECREASED [None]
  - PSORIATIC ARTHROPATHY [None]
  - INCORRECT STORAGE OF DRUG [None]
